FAERS Safety Report 13059048 (Version 4)
Quarter: 2017Q1

REPORT INFORMATION
  Report Type: Spontaneous
  Country: US (occurrence: US)
  Receive Date: 20161223
  Receipt Date: 20170322
  Transmission Date: 20170428
  Serious: Yes (Hospitalization, Other)
  Sender: FDA-Public Use
  Company Number: US-HORIZON-ACT-0298-2016

PATIENT
  Age: 31 Year
  Sex: Male

DRUGS (3)
  1. ACTIMMUNE [Suspect]
     Active Substance: INTERFERON GAMMA-1B
     Indication: CHRONIC GRANULOMATOUS DISEASE
     Dates: start: 201201, end: 20161212
  2. POSACONAZOLE [Concomitant]
     Active Substance: POSACONAZOLE
  3. BACTRIM [Concomitant]
     Active Substance: SULFAMETHOXAZOLE\TRIMETHOPRIM

REACTIONS (3)
  - Protein total increased [Unknown]
  - Lymphadenopathy [Recovered/Resolved]
  - Staphylococcal infection [Not Recovered/Not Resolved]
